FAERS Safety Report 9639624 (Version 1)
Quarter: 2013Q4

REPORT INFORMATION
  Report Type: Spontaneous
  Country: US (occurrence: US)
  Receive Date: 20131023
  Receipt Date: 20131023
  Transmission Date: 20140711
  Serious: No
  Sender: FDA-Public Use
  Company Number: US-BIOGENIDEC-2013BI097843

PATIENT
  Sex: Female

DRUGS (14)
  1. AVONEX [Suspect]
     Indication: MULTIPLE SCLEROSIS
     Route: 030
     Dates: start: 201202
  2. BACLOFEN [Concomitant]
  3. HYDROCODONE ACETAMINOPHEN [Concomitant]
  4. MONTELUKAST [Concomitant]
  5. MODAFINIL [Concomitant]
  6. CITALOPRAM [Concomitant]
  7. VENTOLIN [Concomitant]
  8. LEVOTHYAOXINE [Concomitant]
  9. GABAPENTIN [Concomitant]
  10. AMPYRA [Concomitant]
  11. PREDNISONE [Concomitant]
  12. SINGULAR [Concomitant]
  13. DETROL [Concomitant]
  14. OXYBUTYNIN [Concomitant]

REACTIONS (6)
  - Delusion [Unknown]
  - Pain [Unknown]
  - Feeling abnormal [Unknown]
  - Depression [Unknown]
  - Decreased appetite [Unknown]
  - Fatigue [Unknown]
